FAERS Safety Report 11840917 (Version 3)
Quarter: 2016Q1

REPORT INFORMATION
  Report Type: Spontaneous
  Country: US (occurrence: US)
  Receive Date: 20151216
  Receipt Date: 20160118
  Transmission Date: 20160525
  Serious: Yes (Other)
  Sender: FDA-Public Use
  Company Number: US-GLAXOSMITHKLINE-US2015175319

PATIENT
  Age: 25 Year
  Sex: Female
  Weight: 35.66 kg

DRUGS (18)
  1. BENLYSTA [Suspect]
     Active Substance: BELIMUMAB
     Indication: SYSTEMIC LUPUS ERYTHEMATOSUS
     Dosage: 10 MG/KG, UNK
     Route: 042
     Dates: start: 20151120, end: 20151204
  2. FLUCONAZOLE TABLET [Concomitant]
     Dosage: 150 MG, QD X3
     Route: 048
  3. TRIAMCINOLONE ACETONIDE CREAM [Concomitant]
     Active Substance: TRIAMCINOLONE ACETONIDE
     Dosage: 0.5 % OINTMENT, BID
     Route: 061
  4. HYDROXYZINE HCL TABLET [Concomitant]
     Active Substance: HYDROXYZINE HYDROCHLORIDE
  5. PREDNISONE. [Concomitant]
     Active Substance: PREDNISONE
  6. MYCOPHENOLATE MOFETIL TABLET [Concomitant]
  7. SULFAMETHOXAZOLE-TRIMETHOPRIM (SMZ) [Suspect]
     Active Substance: SULFAMETHOXAZOLE\TRIMETHOPRIM
     Indication: PRODUCT USED FOR UNKNOWN INDICATION
  8. HYDROXYCHLOROQUINE SULFATE. [Concomitant]
     Active Substance: HYDROXYCHLOROQUINE SULFATE
  9. BENLYSTA [Suspect]
     Active Substance: BELIMUMAB
     Dosage: 782 MG, 2 HOUR INFUSION, UNK
     Route: 042
     Dates: start: 20151204, end: 20160105
  10. METHOTREXATE [Concomitant]
     Active Substance: METHOTREXATE
  11. HYDROCODONE + PARACETAMOL [Concomitant]
     Active Substance: ACETAMINOPHEN\HYDROCODONE BITARTRATE
  12. NYSTATIN MOUTH WASH [Concomitant]
     Active Substance: NYSTATIN
  13. BENLYSTA [Suspect]
     Active Substance: BELIMUMAB
     Dosage: 723 MG, 1 HOUR INFUSION, UNK
     Route: 042
     Dates: start: 20151204, end: 20160105
  14. PANTOPRAZOLE SODIUM. [Concomitant]
     Active Substance: PANTOPRAZOLE SODIUM
  15. GABAPENTIN CAPSULE [Concomitant]
     Active Substance: GABAPENTIN
  16. VITAMIN D3 [Concomitant]
     Active Substance: CHOLECALCIFEROL
  17. METHYLPREDNISOLONE. [Concomitant]
     Active Substance: METHYLPREDNISOLONE
  18. CITALOPRAM HYDROBROMIDE. [Concomitant]
     Active Substance: CITALOPRAM HYDROBROMIDE

REACTIONS (6)
  - Rash pruritic [Unknown]
  - Rash papular [Unknown]
  - Rash erythematous [Unknown]
  - Pyrexia [Unknown]
  - Rash [Unknown]
  - Acute cutaneous lupus erythematosus [Unknown]

NARRATIVE: CASE EVENT DATE: 20151204
